FAERS Safety Report 13264675 (Version 8)
Quarter: 2018Q1

REPORT INFORMATION
  Report Type: Spontaneous
  Country: US (occurrence: US)
  Receive Date: 20170223
  Receipt Date: 20180105
  Transmission Date: 20180508
  Serious: Yes (Other)
  Sender: FDA-Public Use
  Company Number: US-PFIZER INC-2017078430

PATIENT
  Age: 71 Year
  Sex: Male
  Weight: 82 kg

DRUGS (15)
  1. BAYER ASPIRIN [Concomitant]
     Active Substance: ASPIRIN
     Indication: CARDIAC DISORDER
     Dosage: 325 MG, DAILY
  2. ISOSORBIDE. [Concomitant]
     Active Substance: ISOSORBIDE
     Indication: DYSPEPSIA
     Dosage: 30 MG, 1X/DAY, IN THE MORNING
  3. AMLODIPINE [Concomitant]
     Active Substance: AMLODIPINE BESYLATE
     Indication: BLOOD PRESSURE ABNORMAL
     Dosage: 10 MG, DAILY
  4. TIMOLOL. [Concomitant]
     Active Substance: TIMOLOL
     Indication: INTRAOCULAR PRESSURE TEST ABNORMAL
     Dosage: 5 MG, 1X/DAY, IN THE MORNING
  5. FINASTERIDE. [Concomitant]
     Active Substance: FINASTERIDE
     Indication: PROSTATIC DISORDER
     Dosage: 5 MG, 1X/DAY, IN THE MORNING
  6. RANEXA [Concomitant]
     Active Substance: RANOLAZINE
     Indication: ARTERIAL OCCLUSIVE DISEASE
     Dosage: 500 MG, 2X/DAY
  7. NITROSTAT [Suspect]
     Active Substance: NITROGLYCERIN
     Indication: CHEST DISCOMFORT
     Dosage: 0.6 MG, AS NEEDED
     Dates: start: 2017
  8. OXYBUTIN [Concomitant]
     Active Substance: OXYBUTYNIN
     Indication: NOCTURIA
     Dosage: 15 MG, 2X/DAY, IN THE MORNING AND AT NIGHT
  9. LATANOPROST. [Concomitant]
     Active Substance: LATANOPROST
     Indication: INTRAOCULAR PRESSURE TEST ABNORMAL
     Dosage: 5 MG, 1X/DAY, AT NIGHT
  10. LOSARTAN POTASSIUM. [Concomitant]
     Active Substance: LOSARTAN POTASSIUM
     Indication: BLOOD PRESSURE ABNORMAL
     Dosage: 50 MG, 1X/DAY
  11. RANEXA [Concomitant]
     Active Substance: RANOLAZINE
     Dosage: 500 MG, 1X/DAY (CUT DOWN DOSE HIMSELF FROM TWO A DAY TO ONCE A DAY)
  12. NITROSTAT [Suspect]
     Active Substance: NITROGLYCERIN
     Indication: CORONARY ARTERY DISEASE
     Dosage: 0.6 MG, AS NEEDED
     Dates: start: 2017, end: 20171203
  13. XANAX [Concomitant]
     Active Substance: ALPRAZOLAM
     Indication: SLEEP DISORDER
     Dosage: 2 MG, AS NEEDED
  14. NITROSTAT [Suspect]
     Active Substance: NITROGLYCERIN
     Indication: CHEST PAIN
     Dosage: 0.4 MG, AS NEEDED, TAKE IN THE MORNING DEFINITELY ( 1 SL PRN)
     Route: 060
     Dates: start: 2016
  15. LAMOTRIGINE. [Concomitant]
     Active Substance: LAMOTRIGINE
     Indication: AFFECTIVE DISORDER
     Dosage: 200 MG, 1X/DAY, IN THE MORNING

REACTIONS (14)
  - Flatulence [Unknown]
  - Pain [Unknown]
  - Diplopia [Unknown]
  - Joint injury [Unknown]
  - Cataract [Unknown]
  - Fatigue [Unknown]
  - Nervousness [Unknown]
  - Skin wrinkling [Unknown]
  - Glaucoma [Unknown]
  - Eructation [Unknown]
  - Decreased appetite [Unknown]
  - Arterial occlusive disease [Unknown]
  - Fall [Unknown]
  - Weight decreased [Unknown]

NARRATIVE: CASE EVENT DATE: 2017
